FAERS Safety Report 10134153 (Version 1)
Quarter: 2014Q2

REPORT INFORMATION
  Report Type: Spontaneous
  Country: US (occurrence: US)
  Receive Date: 20140428
  Receipt Date: 20140428
  Transmission Date: 20141212
  Serious: No
  Sender: FDA-Public Use
  Company Number: US-SANOFI-AVENTIS-2013SA074435

PATIENT
  Age: 21 Year
  Sex: Female

DRUGS (1)
  1. ALLEGRA [Suspect]
     Indication: ALLERGY TO ANIMAL
     Route: 048
     Dates: start: 20130716

REACTIONS (1)
  - Headache [Unknown]
